FAERS Safety Report 5404806-1 (Version None)
Quarter: 2007Q3

REPORT INFORMATION
  Report Type: 
  Country: None (occurrence: None)
  Receive Date: 20070713
  Receipt Date: 20061129
  Transmission Date: 20080115
  Serious: Yes (Hospitalization)
  Sender: FDA-Public Use
  Company Number: US-JNJFOC-20060500217

PATIENT
  Age: 32 Year
  Sex: Female
  Weight: 82.2 kg

DRUGS (3)
  1. ORTHO EVRA [Suspect]
     Indication: CONTRACEPTION
     Dosage: TRANSDERMAL
     Route: 062
     Dates: start: 20030601, end: 20040301
  2. LOTREL [Concomitant]
  3. ELAVIL [Concomitant]

REACTIONS (1)
  - MYOCARDIAL INFARCTION [None]
